FAERS Safety Report 9182559 (Version 1)
Quarter: 2012Q4

REPORT INFORMATION
  Report Type: 
  Country: US (occurrence: US)
  Receive Date: 20121031
  Receipt Date: 20121031
  Transmission Date: 20130627
  Serious: No
  Sender: FDA-Public Use
  Company Number: US-BAYER-2012-110715

PATIENT
  Age: 65 Year
  Sex: Male

DRUGS (5)
  1. STAXYN (FDT/ODT) [Suspect]
     Indication: ERECTILE DYSFUNCTION
     Dosage: 10 mg, PRN
     Route: 048
     Dates: start: 20121021
  2. TAMSULOSIN [Concomitant]
  3. SIMVASTATIN [Concomitant]
  4. ALEVE [Concomitant]
  5. FISH OIL SUPPLEMENT [Concomitant]

REACTIONS (3)
  - Flushing [Recovered/Resolved]
  - Sinus congestion [Recovered/Resolved]
  - Chills [Recovered/Resolved]
